FAERS Safety Report 21266126 (Version 2)
Quarter: 2022Q4

REPORT INFORMATION
  Report Type: Report from Study
  Country: BR (occurrence: BR)
  Receive Date: 20220829
  Receipt Date: 20221007
  Transmission Date: 20230113
  Serious: Yes (Hospitalization, Other)
  Sender: FDA-Public Use
  Company Number: BR-UCBSA-2022050627

PATIENT
  Age: 50 Year
  Sex: Female
  Weight: 80 kg

DRUGS (6)
  1. CERTOLIZUMAB PEGOL [Suspect]
     Active Substance: CERTOLIZUMAB PEGOL
     Indication: Ankylosing spondylitis
     Dosage: 400 MILLIGRAM, EV 4 WEEKS
     Route: 058
  2. AMOXICILINA CLAVULANATO DE POTASSIO [Concomitant]
     Indication: Influenza
     Dosage: 1 DOSAGE FORM, UNK
     Route: 048
  3. AMOXICILLIN TRIHYDRATE [Concomitant]
     Active Substance: AMOXICILLIN
     Indication: Influenza
     Dosage: 1 DOSAGE FORM, UNK
     Route: 048
  4. DULOXETINE [Concomitant]
     Active Substance: DULOXETINE
     Indication: Antidepressant therapy
     Dosage: 60 MILLIGRAM, 2X/DAY (BID)
     Route: 048
  5. PREGABALIN [Concomitant]
     Active Substance: PREGABALIN
     Indication: Pain
     Dosage: 150 MILLIGRAM, 2X/DAY (BID)
     Route: 048
  6. PREDNISONE [Concomitant]
     Active Substance: PREDNISONE
     Indication: Product used for unknown indication
     Dosage: UNK, 2X/DAY (BID)
     Route: 048

REACTIONS (7)
  - Calculus bladder [Recovering/Resolving]
  - Arthralgia [Recovering/Resolving]
  - Influenza [Recovered/Resolved]
  - Injection site swelling [Recovering/Resolving]
  - Gastritis [Unknown]
  - Inappropriate schedule of product administration [Unknown]
  - Product availability issue [Unknown]

NARRATIVE: CASE EVENT DATE: 20190815
